FAERS Safety Report 5299749-0 (Version None)
Quarter: 2007Q2

REPORT INFORMATION
  Report Type: 
  Country: None (occurrence: None)
  Receive Date: 20070410
  Receipt Date: 20070327
  Transmission Date: 20071010
  Serious: Yes (Life-Threatening, Hospitalization)
  Sender: FDA-Public Use
  Company Number: 2007-00037

PATIENT
  Age: 58 Year
  Sex: Male
  Weight: 65.2 kg

DRUGS (4)
  1. VELCADE [Suspect]
     Indication: MULTIPLE MYELOMA
     Dosage: 2.10 MG, INTRAVENOUS
     Route: 042
     Dates: start: 20061113, end: 20061123
  2. DEXAMETHASONE TABLET [Concomitant]
  3. GRANISETRON  HCL [Concomitant]
  4. RANITIDIN (RANITIDINE HYDROCHLORIDE) TABLET [Concomitant]

REACTIONS (2)
  - BLOOD CREATININE INCREASED [None]
  - DIALYSIS [None]
